FAERS Safety Report 19784004 (Version 1)
Quarter: 2021Q3

REPORT INFORMATION
  Report Type: Spontaneous
  Country: US (occurrence: US)
  Receive Date: 20210903
  Receipt Date: 20210903
  Transmission Date: 20211014
  Serious: No
  Sender: FDA-Public Use
  Company Number: US-009507513-2108USA007562

PATIENT

DRUGS (1)
  1. DIFICID [Suspect]
     Active Substance: FIDAXOMICIN
     Dosage: 1 TABLET TWICE A DAY
     Route: 048
     Dates: start: 20210824

REACTIONS (1)
  - Product dispensing error [Unknown]
